FAERS Safety Report 10223112 (Version 1)
Quarter: 2014Q2

REPORT INFORMATION
  Report Type: Spontaneous
  Country: GB (occurrence: GB)
  Receive Date: 20140607
  Receipt Date: 20140607
  Transmission Date: 20141212
  Serious: Yes (Disabling)
  Sender: FDA-Public Use
  Company Number: PHHY2014GB066355

PATIENT
  Age: 62 Year
  Sex: Male

DRUGS (2)
  1. PRAVASTATIN [Suspect]
  2. METFORMIN [Concomitant]

REACTIONS (1)
  - Mobility decreased [Recovering/Resolving]
